FAERS Safety Report 18521892 (Version 3)
Quarter: 2020Q4

REPORT INFORMATION
  Report Type: Spontaneous
  Country: US (occurrence: US)
  Receive Date: 20201119
  Receipt Date: 20201203
  Transmission Date: 20210114
  Serious: Yes (Hospitalization, Other)
  Sender: FDA-Public Use
  Company Number: US-PFIZER INC-2020455889

PATIENT
  Age: 41 Year
  Sex: Female

DRUGS (4)
  1. KETAMINE HCL [Suspect]
     Active Substance: KETAMINE HYDROCHLORIDE
     Indication: ENDOMETRIOSIS
     Dosage: 40 MG (40 MG/HOUR, ON HOSPITAL DAYS 1 THROUGH 4)
     Route: 042
  2. FLUOXETINE [Interacting]
     Active Substance: FLUOXETINE HYDROCHLORIDE
     Indication: ENDOMETRIOSIS
     Dosage: 40 MG, DAILY
  3. COUMADIN [Concomitant]
     Active Substance: WARFARIN SODIUM
     Indication: ENDOMETRIOSIS
     Dosage: 5 MG, DAILY
  4. DIPHENHYDRAMINE. [Concomitant]
     Active Substance: DIPHENHYDRAMINE
     Indication: ENDOMETRIOSIS
     Dosage: 25 MG, DAILY

REACTIONS (2)
  - Drug interaction [Unknown]
  - Serotonin syndrome [Recovered/Resolved]
